FAERS Safety Report 9422075 (Version 1)
Quarter: 2013Q3

REPORT INFORMATION
  Report Type: Spontaneous
  Country: US (occurrence: US)
  Receive Date: 20130726
  Receipt Date: 20130726
  Transmission Date: 20140515
  Serious: No
  Sender: FDA-Public Use
  Company Number: US-MYLANLABS-2013S1006691

PATIENT
  Age: 54 Year
  Sex: Female
  Weight: 72.58 kg

DRUGS (3)
  1. PAROXETINE HYDROCHLORIDE EXTENDED-RELEASE TABLETS [Suspect]
     Indication: DEPRESSION
     Route: 048
  2. PAROXETINE HYDROCHLORIDE EXTENDED-RELEASE TABLETS [Suspect]
     Indication: ANXIETY
     Route: 048
  3. HORMONES [Concomitant]

REACTIONS (5)
  - Drug ineffective [Not Recovered/Not Resolved]
  - Depression [Not Recovered/Not Resolved]
  - Anxiety [Not Recovered/Not Resolved]
  - Diarrhoea [Not Recovered/Not Resolved]
  - Medication residue present [Not Recovered/Not Resolved]
